FAERS Safety Report 9486640 (Version 2)
Quarter: 2013Q3

REPORT INFORMATION
  Report Type: Spontaneous
  Country: TR (occurrence: TR)
  Receive Date: 20130829
  Receipt Date: 20130829
  Transmission Date: 20140515
  Serious: Yes (Other)
  Sender: FDA-Public Use
  Company Number: TR-BAYER-2013-057923

PATIENT
  Age: 33 Year
  Sex: Female
  Weight: 56 kg

DRUGS (1)
  1. NEXAVAR [Suspect]
     Indication: THYROID CANCER
     Dosage: UNK
     Route: 048

REACTIONS (11)
  - Venous thrombosis [None]
  - Mucosal inflammation [Recovered/Resolved]
  - Neuropathy peripheral [Recovered/Resolved]
  - Alopecia [Recovered/Resolved]
  - Skin hyperpigmentation [Not Recovered/Not Resolved]
  - Off label use [None]
  - Dysplastic naevus [None]
  - Skin atrophy [None]
  - Rash [None]
  - Erythema [None]
  - Neuropathy peripheral [Recovered/Resolved]
